FAERS Safety Report 5204028-3 (Version None)
Quarter: 2007Q1

REPORT INFORMATION
  Report Type: 
  Country: None (occurrence: None)
  Receive Date: 20070110
  Receipt Date: 20051121
  Transmission Date: 20070707
  Serious: No
  Sender: FDA-Public Use
  Company Number: US-BRISTOL-MYERS SQUIBB COMPANY-13150107

PATIENT
  Age: 62 Year
  Sex: Female
  Weight: 59 kg

DRUGS (6)
  1. ABILIFY [Suspect]
     Indication: DELUSIONAL DISORDER, UNSPECIFIED TYPE
     Route: 048
     Dates: start: 20050705, end: 20050731
  2. ABILIFY [Suspect]
     Route: 048
     Dates: start: 20050801, end: 20050912
  3. ABILIFY [Suspect]
     Route: 048
     Dates: start: 20050913, end: 20050926
  4. ABILIFY [Suspect]
     Route: 048
     Dates: start: 20050927, end: 20051019
  5. ALEVE [Concomitant]
  6. PAMELOR [Concomitant]
     Dosage: HS
     Route: 048

REACTIONS (1)
  - PAIN IN EXTREMITY [None]
